FAERS Safety Report 16999435 (Version 2)
Quarter: 2019Q4

REPORT INFORMATION
  Report Type: Report from Study
  Country: CA (occurrence: CA)
  Receive Date: 20191105
  Receipt Date: 20191127
  Transmission Date: 20200122
  Serious: Yes (Hospitalization)
  Sender: FDA-Public Use
  Company Number: CA-HLSUS-2019-CA-001463

PATIENT
  Sex: Male

DRUGS (1)
  1. CLOZARIL [Suspect]
     Active Substance: CLOZAPINE
     Dosage: 25 MG AM AND 50 MG HS
     Route: 048
     Dates: start: 20120817

REACTIONS (3)
  - Treatment noncompliance [Unknown]
  - Hallucination, auditory [Unknown]
  - Urinary tract infection [Unknown]
